FAERS Safety Report 11884070 (Version 1)
Quarter: 2015Q4

REPORT INFORMATION
  Report Type: Spontaneous
  Country: US (occurrence: None)
  Receive Date: 20151231
  Receipt Date: 20151231
  Transmission Date: 20160305
  Serious: Yes (Hospitalization)
  Sender: FDA-Public Use
  Company Number: None

PATIENT
  Age: 63 Year
  Sex: Male
  Weight: 64.3 kg

DRUGS (1)
  1. CISPLATIN. [Suspect]
     Active Substance: CISPLATIN
     Dates: end: 20151207

REACTIONS (5)
  - Asthenia [None]
  - Nausea [None]
  - Dehydration [None]
  - Hyponatraemia [None]
  - Vomiting [None]

NARRATIVE: CASE EVENT DATE: 20151221
